FAERS Safety Report 9742079 (Version 2)
Quarter: 2013Q4

REPORT INFORMATION
  Report Type: Spontaneous
  Country: FR (occurrence: FR)
  Receive Date: 20131210
  Receipt Date: 20131231
  Transmission Date: 20140711
  Serious: Yes (Other)
  Sender: FDA-Public Use
  Company Number: FR-BRISTOL-MYERS SQUIBB COMPANY-19890516

PATIENT
  Age: 65 Year
  Sex: Male

DRUGS (3)
  1. ERBITUX SOLN FOR INF [Suspect]
     Indication: HYPOPHARYNGEAL CANCER
     Dosage: 91 ML (553 MG 1/CYCLE
     Route: 042
     Dates: start: 20131028, end: 20131028
  2. POLARAMINE [Concomitant]
     Indication: PREMEDICATION
     Dosage: 5MG AT 10AM
     Route: 042
     Dates: start: 20131028
  3. METHYLPREDNISOLONE [Concomitant]
     Indication: PREMEDICATION
     Dates: start: 20131028

REACTIONS (1)
  - Rash maculo-papular [Recovered/Resolved]
